FAERS Safety Report 4599230-8 (Version None)
Quarter: 2005Q1

REPORT INFORMATION
  Report Type: 
  Country: None (occurrence: None)
  Receive Date: 20050302
  Receipt Date: 20050302
  Transmission Date: 20050727
  Serious: Yes (Life-Threatening)
  Sender: FDA-Public Use
  Company Number: None

PATIENT
  Age: 60 Year
  Sex: Male
  Weight: 105 kg

DRUGS (10)
  1. ISOVUE-370 [Suspect]
     Indication: CATHETERISATION CARDIAC
     Dosage: 180ML  ONCE INTRAVENOUS
     Route: 042
     Dates: start: 20040723, end: 20040723
  2. ANGIOMAX [Suspect]
     Indication: CATHETERISATION CARDIAC
     Dosage: 78MG ONCE INTRAVENOUS
     Route: 042
     Dates: start: 20040723, end: 20040723
  3. MIDAZOLAM [Concomitant]
  4. FENTANYL [Concomitant]
  5. NEXIUM [Concomitant]
  6. LIPITOR [Concomitant]
  7. ZOLOFT [Concomitant]
  8. HYZAAR [Concomitant]
  9. ASPIRIN [Concomitant]
  10. CLOPIDOGREL [Concomitant]

REACTIONS (6)
  - ANAPHYLACTIC REACTION [None]
  - COGNITIVE DISORDER [None]
  - DELIRIUM TREMENS [None]
  - HYPOTENSION [None]
  - OROPHARYNGEAL SWELLING [None]
  - PROCEDURAL COMPLICATION [None]
